FAERS Safety Report 14528719 (Version 1)
Quarter: 2018Q1

REPORT INFORMATION
  Report Type: Spontaneous
  Country: US (occurrence: US)
  Receive Date: 20180214
  Receipt Date: 20180214
  Transmission Date: 20180509
  Serious: Yes (Hospitalization)
  Sender: FDA-Public Use
  Company Number: US-ROCHE-2070750

PATIENT
  Age: 45 Year
  Sex: Female
  Weight: 72.64 kg

DRUGS (7)
  1. XOLAIR [Suspect]
     Active Substance: OMALIZUMAB
     Dosage: VIAL 150 MG
     Route: 058
     Dates: start: 20180119
  2. XOLAIR [Suspect]
     Active Substance: OMALIZUMAB
     Dosage: 10TH INJECTION
     Route: 058
  3. PREDNISONE. [Concomitant]
     Active Substance: PREDNISONE
     Dosage: TAPER
     Route: 065
  4. PREDNISONE. [Concomitant]
     Active Substance: PREDNISONE
     Indication: PRODUCT USED FOR UNKNOWN INDICATION
     Dosage: TAPER
     Route: 065
  5. XOLAIR [Suspect]
     Active Substance: OMALIZUMAB
     Indication: ASTHMA
     Dosage: 3 INJECTIONS
     Route: 058
     Dates: start: 201708
  6. ALBUTEROL. [Concomitant]
     Active Substance: ALBUTEROL
     Indication: PRODUCT USED FOR UNKNOWN INDICATION
     Dosage: INHALER ONCE A DAY
     Route: 055
  7. EPI-EZ PEN [Concomitant]
     Indication: PRODUCT USED FOR UNKNOWN INDICATION

REACTIONS (14)
  - Paraesthesia [Unknown]
  - Hypoaesthesia oral [Recovered/Resolved]
  - Pharyngeal oedema [Recovered/Resolved]
  - Hypoaesthesia [Recovered/Resolved]
  - Feeling hot [Unknown]
  - Weight increased [Unknown]
  - Aphonia [Recovered/Resolved]
  - Respiratory distress [Unknown]
  - Oxygen saturation decreased [Unknown]
  - Dysphagia [Unknown]
  - Hypersensitivity [Unknown]
  - Dyspnoea [Unknown]
  - Dizziness [Unknown]
  - Asthenia [Unknown]

NARRATIVE: CASE EVENT DATE: 20180119
